FAERS Safety Report 6496653-7 (Version None)
Quarter: 2009Q4

REPORT INFORMATION
  Report Type: 
  Country: None (occurrence: None)
  Receive Date: 20091210
  Receipt Date: 20091127
  Transmission Date: 20100525
  Serious: Yes (Death, Hospitalization, Congenital Anomaly)
  Sender: FDA-Public Use
  Company Number: 310003L09TUR

PATIENT
  Sex: Male

DRUGS (2)
  1. GONAL-F [Suspect]
     Indication: OVARIAN HYPERSTIMULATION SYNDROME
     Dosage: IVF
  2. CHORIONIC GONADOTROPIN [Suspect]
     Indication: OVARIAN HYPERSTIMULATION SYNDROME
     Dosage: IVF

REACTIONS (12)
  - ANOMALY OF EXTERNAL EAR CONGENITAL [None]
  - CAESAREAN SECTION [None]
  - CARDIO-RESPIRATORY ARREST [None]
  - CEREBRAL DYSGENESIS [None]
  - CEREBRAL VENTRICLE DILATATION [None]
  - CONGENITAL CYSTIC KIDNEY DISEASE [None]
  - MATERNAL DRUGS AFFECTING FOETUS [None]
  - MULTIPLE CONGENITAL ABNORMALITIES [None]
  - NEONATAL INFECTION [None]
  - NEONATAL RESPIRATORY DEPRESSION [None]
  - PATENT DUCTUS ARTERIOSUS [None]
  - SEPTUM PELLUCIDUM AGENESIS [None]
